FAERS Safety Report 7960119-5 (Version None)
Quarter: 2011Q4

REPORT INFORMATION
  Report Type: 
  Country: None (occurrence: None)
  Receive Date: 20111206
  Receipt Date: 20111130
  Transmission Date: 20120403
  Serious: Yes (Hospitalization, Other)
  Sender: FDA-Public Use
  Company Number: PHHY2011CL105299

PATIENT
  Age: 58 Year
  Sex: Male

DRUGS (3)
  1. VALSARTAN  AND HYDROCHLOROTHIAZIDE [Suspect]
     Indication: HYPERTENSION
     Dosage: 1 DF, (160/12.5 MG ONE PER DAY)
     Route: 048
  2. METFORMIN HCL [Concomitant]
  3. ASPIRIN [Concomitant]

REACTIONS (1)
  - MYOCARDIAL INFARCTION [None]
